FAERS Safety Report 4775552-2 (Version None)
Quarter: 2005Q3

REPORT INFORMATION
  Report Type: 
  Country: None (occurrence: None)
  Receive Date: 20050922
  Receipt Date: 20050914
  Transmission Date: 20060218
  Serious: Yes (Other)
  Sender: FDA-Public Use
  Company Number: 200516585US

PATIENT
  Sex: Female
  Weight: 68.1 kg

DRUGS (3)
  1. TAXOTERE [Suspect]
     Indication: BREAST CANCER
     Dosage: DOSE: UNK
     Dates: start: 20030501, end: 20050515
  2. IBUPROFEN [Concomitant]
     Dosage: DOSE: UNK
  3. OXYCONTIN [Concomitant]
     Dosage: DOSE: UNK

REACTIONS (9)
  - AMNESIA [None]
  - BACK PAIN [None]
  - CEREBRAL ISCHAEMIA [None]
  - DEMENTIA [None]
  - EPILEPSY [None]
  - HEADACHE [None]
  - NEUROPATHY PERIPHERAL [None]
  - RED BLOOD CELL COUNT DECREASED [None]
  - WHITE BLOOD CELL COUNT DECREASED [None]
